FAERS Safety Report 12317045 (Version 1)
Quarter: 2016Q2

REPORT INFORMATION
  Report Type: Spontaneous
  Country: US (occurrence: None)
  Receive Date: 20160428
  Receipt Date: 20160428
  Transmission Date: 20160815
  Serious: Yes (Life-Threatening, Hospitalization)
  Sender: FDA-Public Use
  Company Number: None

PATIENT
  Age: 74 Year
  Sex: Female

DRUGS (1)
  1. ENOXAPARIN, 60MG/0.6ML [Suspect]
     Active Substance: ENOXAPARIN
     Route: 058
     Dates: start: 20160424, end: 20160426

REACTIONS (3)
  - Rectal haemorrhage [None]
  - Vaginal haemorrhage [None]
  - Haemorrhage urinary tract [None]

NARRATIVE: CASE EVENT DATE: 20160426
